FAERS Safety Report 5209834-7 (Version None)
Quarter: 2007Q1

REPORT INFORMATION
  Report Type: 
  Country: None (occurrence: None)
  Receive Date: 20070116
  Receipt Date: 20070108
  Transmission Date: 20070707
  Serious: Yes (Hospitalization, Disabling)
  Sender: FDA-Public Use
  Company Number: NO-MERCK-0701NOR00006

PATIENT
  Age: 80 Year
  Sex: Female

DRUGS (8)
  1. ZOCOR [Suspect]
     Route: 065
  2. MORPHINE HYDROCHLORIDE [Concomitant]
     Route: 048
  3. DICLOFENAC SODIUM [Suspect]
     Route: 048
  4. LEVOTHYROXINE SODIUM [Suspect]
     Route: 048
  5. GABAPENTIN [Concomitant]
     Route: 048
  6. WARFARIN SODIUM [Suspect]
     Indication: ATRIAL FIBRILLATION
     Route: 048
     Dates: end: 20061130
  7. ACETAMINOPHEN [Suspect]
     Route: 048
  8. CARBAMAZEPINE [Suspect]
     Route: 048

REACTIONS (3)
  - DRUG INTERACTION [None]
  - PARAPLEGIA [None]
  - SPINAL EPIDURAL HAEMORRHAGE [None]
